FAERS Safety Report 6142063-1 (Version None)
Quarter: 2009Q1

REPORT INFORMATION
  Report Type: 
  Country: None (occurrence: None)
  Receive Date: 20090331
  Receipt Date: 20090331
  Transmission Date: 20090719
  Serious: Yes (Other)
  Sender: FDA-Public Use
  Company Number: None

PATIENT
  Sex: Female
  Weight: 72.5755 kg

DRUGS (1)
  1. METOCLOPRAMIDE 5 MG TEVA [Suspect]
     Indication: NAUSEA
     Dosage: 5 MG 3X DAILY PO
     Route: 048
     Dates: start: 20081105, end: 20090210

REACTIONS (7)
  - GRIMACING [None]
  - JAW DISORDER [None]
  - LIP DISORDER [None]
  - MASTICATION DISORDER [None]
  - TARDIVE DYSKINESIA [None]
  - TONGUE DISORDER [None]
  - TREMOR [None]
